FAERS Safety Report 13496815 (Version 4)
Quarter: 2017Q4

REPORT INFORMATION
  Report Type: Report from Study
  Country: BE (occurrence: BE)
  Receive Date: 20170428
  Receipt Date: 20171102
  Transmission Date: 20180320
  Serious: Yes (Hospitalization)
  Sender: FDA-Public Use
  Company Number: BE-SAOL THERAPEUTICS-2017SAO00774

PATIENT
  Age: 38 Year
  Sex: Female
  Weight: 48 kg

DRUGS (3)
  1. BACLOFEN. [Suspect]
     Active Substance: BACLOFEN
     Dosage: 360.8 ?G, \DAY
     Route: 037
     Dates: start: 20160901, end: 20161101
  2. BACLOFEN. [Suspect]
     Active Substance: BACLOFEN
     Dosage: 341.2 ?G, \DAY
     Route: 037
     Dates: start: 20161101
  3. ORENCIA [Concomitant]
     Active Substance: ABATACEPT
     Dosage: 12.5 MG, 1X/WEEK
     Route: 058

REACTIONS (6)
  - Asthenia [Recovered/Resolved]
  - Incorrect dose administered [Recovered/Resolved]
  - Hypertension [Recovered/Resolved]
  - Mydriasis [Recovered/Resolved]
  - Muscle spasticity [Unknown]
  - Somnolence [Recovered/Resolved]

NARRATIVE: CASE EVENT DATE: 20170410
